FAERS Safety Report 23431572 (Version 1)
Quarter: 2024Q1

REPORT INFORMATION
  Report Type: Spontaneous
  Country: CZ (occurrence: CZ)
  Receive Date: 20240123
  Receipt Date: 20240123
  Transmission Date: 20240410
  Serious: No
  Sender: FDA-Public Use
  Company Number: CZ-ALKEM LABORATORIES LIMITED-CZ-ALKEM-2023-16126

PATIENT
  Age: 37 Year
  Sex: Female
  Weight: 60 kg

DRUGS (3)
  1. LACOSAMIDE [Suspect]
     Active Substance: LACOSAMIDE
     Indication: Epilepsy
     Dosage: UNK
     Route: 065
  2. LACOSAMIDE [Suspect]
     Active Substance: LACOSAMIDE
     Dosage: 200 MG/DAY
     Route: 065
  3. LEVETIRACETAM [Suspect]
     Active Substance: LEVETIRACETAM
     Indication: Epilepsy
     Dosage: 1000 MG/DAY
     Route: 065

REACTIONS (2)
  - Exposure during pregnancy [Unknown]
  - Maternal exposure during breast feeding [Unknown]
